FAERS Safety Report 9251591 (Version 2)
Quarter: 2013Q3

REPORT INFORMATION
  Report Type: Spontaneous
  Country: GB (occurrence: GB)
  Receive Date: 20130424
  Receipt Date: 20130829
  Transmission Date: 20140515
  Serious: Yes (Other)
  Sender: FDA-Public Use
  Company Number: GB-VERTEX PHARMACEUTICALS INC.-2013-005315

PATIENT
  Age: 50 Year
  Sex: Male
  Weight: 90.4 kg

DRUGS (3)
  1. INCIVO [Suspect]
     Indication: HEPATITIS C
     Dosage: 750 MG, UNK
     Route: 048
     Dates: start: 20130213, end: 20130508
  2. PEGASYS [Concomitant]
     Indication: HEPATITIS C
     Dosage: 180 ?G, QW
     Route: 058
     Dates: start: 20130213
  3. REBETOL [Concomitant]
     Indication: HEPATITIS C
     Dosage: 600 MG, BID
     Dates: start: 20130213

REACTIONS (1)
  - Rash [Recovered/Resolved]
